FAERS Safety Report 22331305 (Version 1)
Quarter: 2023Q2

REPORT INFORMATION
  Report Type: Spontaneous
  Country: US (occurrence: US)
  Receive Date: 20230517
  Receipt Date: 20230517
  Transmission Date: 20230722
  Serious: Yes (Hospitalization)
  Sender: FDA-Public Use
  Company Number: US-LEO Pharma-352030

PATIENT
  Age: 69 Year
  Sex: Male

DRUGS (38)
  1. PROPRANOLOL HYDROCHLORIDE [Concomitant]
     Active Substance: PROPRANOLOL HYDROCHLORIDE
     Indication: Product used for unknown indication
  2. ASPIRIN [Concomitant]
     Active Substance: ASPIRIN
     Indication: Product used for unknown indication
  3. ADBRY [Suspect]
     Active Substance: TRALOKINUMAB-LDRM
     Indication: Dermatitis atopic
     Dosage: DOSAGE : 4 INJECTIONS FOR THE INITIAL DOSE
     Route: 058
  4. ADBRY [Suspect]
     Active Substance: TRALOKINUMAB-LDRM
     Indication: Dermatitis atopic
     Dosage: DOSAGE : 4 INJECTIONS FOR THE INITIAL DOSE
     Route: 058
  5. ADBRY [Suspect]
     Active Substance: TRALOKINUMAB-LDRM
     Indication: Dermatitis atopic
     Dosage: DOSAGE : 4 INJECTIONS FOR THE INITIAL DOSE
     Route: 058
  6. ADBRY [Suspect]
     Active Substance: TRALOKINUMAB-LDRM
     Indication: Dermatitis atopic
     Dosage: DOSAGE : 4 INJECTIONS FOR THE INITIAL DOSE
     Route: 058
  7. ADBRY [Suspect]
     Active Substance: TRALOKINUMAB-LDRM
     Indication: Dermatitis atopic
     Dosage: MAINTENANCE DOSE: 2 INJECTIONS EVERY TWO WEEKS
     Route: 058
  8. ADBRY [Suspect]
     Active Substance: TRALOKINUMAB-LDRM
     Indication: Dermatitis atopic
     Dosage: MAINTENANCE DOSE: 2 INJECTIONS EVERY TWO WEEKS
     Route: 058
  9. ADBRY [Suspect]
     Active Substance: TRALOKINUMAB-LDRM
     Indication: Dermatitis atopic
     Dosage: MAINTENANCE DOSE: 2 INJECTIONS EVERY TWO WEEKS
     Route: 058
  10. ADBRY [Suspect]
     Active Substance: TRALOKINUMAB-LDRM
     Indication: Dermatitis atopic
     Dosage: MAINTENANCE DOSE: 2 INJECTIONS EVERY TWO WEEKS
     Route: 058
  11. ADBRY [Suspect]
     Active Substance: TRALOKINUMAB-LDRM
     Indication: Psoriasis
     Dosage: DOSAGE : 4 INJECTIONS FOR THE INITIAL DOSE
     Route: 058
  12. ADBRY [Suspect]
     Active Substance: TRALOKINUMAB-LDRM
     Indication: Psoriasis
     Dosage: DOSAGE : 4 INJECTIONS FOR THE INITIAL DOSE
     Route: 058
  13. ADBRY [Suspect]
     Active Substance: TRALOKINUMAB-LDRM
     Indication: Psoriasis
     Dosage: DOSAGE : 4 INJECTIONS FOR THE INITIAL DOSE
     Route: 058
  14. ADBRY [Suspect]
     Active Substance: TRALOKINUMAB-LDRM
     Indication: Psoriasis
     Dosage: DOSAGE : 4 INJECTIONS FOR THE INITIAL DOSE
     Route: 058
  15. ADBRY [Suspect]
     Active Substance: TRALOKINUMAB-LDRM
     Indication: Psoriasis
     Dosage: MAINTENANCE DOSE: 2 INJECTIONS EVERY TWO WEEKS
     Route: 058
  16. ADBRY [Suspect]
     Active Substance: TRALOKINUMAB-LDRM
     Indication: Psoriasis
     Dosage: MAINTENANCE DOSE: 2 INJECTIONS EVERY TWO WEEKS
     Route: 058
  17. ADBRY [Suspect]
     Active Substance: TRALOKINUMAB-LDRM
     Indication: Psoriasis
     Dosage: MAINTENANCE DOSE: 2 INJECTIONS EVERY TWO WEEKS
     Route: 058
  18. ADBRY [Suspect]
     Active Substance: TRALOKINUMAB-LDRM
     Indication: Psoriasis
     Dosage: MAINTENANCE DOSE: 2 INJECTIONS EVERY TWO WEEKS
     Route: 058
  19. ADBRY [Suspect]
     Active Substance: TRALOKINUMAB-LDRM
     Indication: Dermatitis atopic
     Dosage: DOSAGE : 4 INJECTIONS FOR THE INITIAL DOSE
     Route: 058
  20. ADBRY [Suspect]
     Active Substance: TRALOKINUMAB-LDRM
     Indication: Dermatitis atopic
     Dosage: DOSAGE : 4 INJECTIONS FOR THE INITIAL DOSE
     Route: 058
  21. ADBRY [Suspect]
     Active Substance: TRALOKINUMAB-LDRM
     Indication: Dermatitis atopic
     Dosage: DOSAGE : 4 INJECTIONS FOR THE INITIAL DOSE
     Route: 058
  22. ADBRY [Suspect]
     Active Substance: TRALOKINUMAB-LDRM
     Indication: Dermatitis atopic
     Dosage: DOSAGE : 4 INJECTIONS FOR THE INITIAL DOSE
     Route: 058
  23. ADBRY [Suspect]
     Active Substance: TRALOKINUMAB-LDRM
     Indication: Dermatitis atopic
     Dosage: MAINTENANCE DOSE: 2 INJECTIONS EVERY TWO WEEKS
     Route: 058
  24. ADBRY [Suspect]
     Active Substance: TRALOKINUMAB-LDRM
     Indication: Dermatitis atopic
     Dosage: MAINTENANCE DOSE: 2 INJECTIONS EVERY TWO WEEKS
     Route: 058
  25. ADBRY [Suspect]
     Active Substance: TRALOKINUMAB-LDRM
     Indication: Dermatitis atopic
     Dosage: MAINTENANCE DOSE: 2 INJECTIONS EVERY TWO WEEKS
     Route: 058
  26. ADBRY [Suspect]
     Active Substance: TRALOKINUMAB-LDRM
     Indication: Dermatitis atopic
     Dosage: MAINTENANCE DOSE: 2 INJECTIONS EVERY TWO WEEKS
     Route: 058
  27. ALLOPURINOL [Concomitant]
     Active Substance: ALLOPURINOL
     Indication: Product used for unknown indication
  28. VITAMIN C [Concomitant]
     Active Substance: ASCORBIC ACID
     Indication: Product used for unknown indication
  29. OMEPRAZOLE [Concomitant]
     Active Substance: OMEPRAZOLE
     Indication: Product used for unknown indication
  30. ALEVE [Concomitant]
     Active Substance: NAPROXEN SODIUM
     Indication: Product used for unknown indication
  31. DEVICE [Suspect]
     Active Substance: DEVICE
     Indication: Psoriasis
  32. DEVICE [Suspect]
     Active Substance: DEVICE
     Indication: Psoriasis
  33. DEVICE [Suspect]
     Active Substance: DEVICE
     Indication: Dermatitis atopic
  34. DEVICE [Suspect]
     Active Substance: DEVICE
     Indication: Dermatitis atopic
  35. DEVICE [Suspect]
     Active Substance: DEVICE
     Indication: Dermatitis atopic
  36. DEVICE [Suspect]
     Active Substance: DEVICE
     Indication: Dermatitis atopic
  37. VITAMIN D2 [Concomitant]
     Active Substance: ERGOCALCIFEROL
     Indication: Product used for unknown indication
  38. VYVANSE [Concomitant]
     Active Substance: LISDEXAMFETAMINE DIMESYLATE
     Indication: Product used for unknown indication

REACTIONS (1)
  - Staphylococcal infection [Unknown]

NARRATIVE: CASE EVENT DATE: 20230101
